FAERS Safety Report 7935162-2 (Version None)
Quarter: 2011Q4

REPORT INFORMATION
  Report Type: 
  Country: None (occurrence: None)
  Receive Date: 20111122
  Receipt Date: 20111115
  Transmission Date: 20120403
  Serious: Yes (Other)
  Sender: FDA-Public Use
  Company Number: PHHY2011GB100013

PATIENT
  Sex: Male

DRUGS (1)
  1. AMIODARONE HCL [Suspect]
     Indication: VENTRICULAR TACHYCARDIA

REACTIONS (4)
  - RESPIRATORY DISORDER [None]
  - MALIGNANT MELANOMA [None]
  - PLEURAL EFFUSION [None]
  - CHEST X-RAY ABNORMAL [None]
